FAERS Safety Report 11366491 (Version 1)
Quarter: 2015Q3

REPORT INFORMATION
  Report Type: Spontaneous
  Country: US (occurrence: US)
  Receive Date: 20150811
  Receipt Date: 20150811
  Transmission Date: 20151125
  Serious: No
  Sender: FDA-Public Use
  Company Number: US-ELI_LILLY_AND_COMPANY-US201301009126

PATIENT
  Sex: Male
  Weight: 85.26 kg

DRUGS (9)
  1. AXIRON [Suspect]
     Active Substance: TESTOSTERONE
     Indication: HYPOGONADISM MALE
     Dosage: 60MG, DAILY
     Dates: start: 201208
  2. TRAMADOL. [Concomitant]
     Active Substance: TRAMADOL
  3. AXIRON [Suspect]
     Active Substance: TESTOSTERONE
     Dosage: 60MG, DAILY
  4. AXIRON [Suspect]
     Active Substance: TESTOSTERONE
     Dosage: 30 MG, QD
  5. NORVASC [Concomitant]
     Active Substance: AMLODIPINE BESYLATE
  6. TADALAFIL [Concomitant]
     Active Substance: TADALAFIL
  7. AXIRON [Suspect]
     Active Substance: TESTOSTERONE
     Dosage: 90MG, DAILY
  8. PRISTIQ EXTENDED RELEASE [Concomitant]
     Active Substance: DESVENLAFAXINE SUCCINATE
  9. AMLODIPINE [Concomitant]
     Active Substance: AMLODIPINE BESYLATE

REACTIONS (1)
  - Breast pain [Recovered/Resolved]
